FAERS Safety Report 16159443 (Version 3)
Quarter: 2019Q2

REPORT INFORMATION
  Report Type: Report from Study
  Country: JP (occurrence: JP)
  Receive Date: 20190404
  Receipt Date: 20190628
  Transmission Date: 20190711
  Serious: Yes (Other)
  Sender: FDA-Public Use
  Company Number: JP-EISAI MEDICAL RESEARCH-EC-2019-054332

PATIENT
  Age: 23 Year
  Sex: Female
  Weight: 64 kg

DRUGS (8)
  1. FYCOMPA [Suspect]
     Active Substance: PERAMPANEL
     Route: 048
     Dates: start: 20170809
  2. LOXOPROFEN [Concomitant]
     Active Substance: LOXOPROFEN
  3. FYCOMPA [Suspect]
     Active Substance: PERAMPANEL
     Route: 048
     Dates: start: 20170614, end: 20170808
  4. FYCOMPA [Suspect]
     Active Substance: PERAMPANEL
     Indication: PARTIAL SEIZURES
     Route: 048
     Dates: start: 20170516, end: 20170613
  5. TSUMURA SHAKUYAKUKANZOTO EXTRACT GRANULES FOR ETHICAL USE [Concomitant]
  6. VIMPAT [Suspect]
     Active Substance: LACOSAMIDE
     Indication: PARTIAL SEIZURES
     Route: 048
     Dates: start: 20171006, end: 20171029
  7. VIMPAT [Suspect]
     Active Substance: LACOSAMIDE
     Route: 048
     Dates: start: 20171030
  8. LAMICTAL [Concomitant]
     Active Substance: LAMOTRIGINE
     Indication: PARTIAL SEIZURES

REACTIONS (1)
  - Dissociative disorder [Not Recovered/Not Resolved]

NARRATIVE: CASE EVENT DATE: 20171024
